FAERS Safety Report 6623973-5 (Version None)
Quarter: 2010Q1

REPORT INFORMATION
  Report Type: 
  Country: None (occurrence: None)
  Receive Date: 20100310
  Receipt Date: 20100226
  Transmission Date: 20100710
  Serious: Yes (Other)
  Sender: FDA-Public Use
  Company Number: BR-PFIZER INC-2009301814

PATIENT
  Age: 69 Year
  Sex: Male
  Weight: 83 kg

DRUGS (3)
  1. CHAMPIX [Suspect]
     Indication: TOBACCO USER
     Dosage: 1 MG, 2X/DAY, EVERY 12 HOURS
     Route: 048
     Dates: start: 20091115
  2. VALSARTAN [Concomitant]
     Indication: HYPERTENSION
     Dosage: UNK
  3. SECOTEX [Concomitant]
     Indication: BENIGN PROSTATIC HYPERPLASIA
     Dosage: UNK

REACTIONS (3)
  - DELIRIUM [None]
  - DYSPHONIA [None]
  - HALLUCINATION [None]
